FAERS Safety Report 9388056 (Version 1)
Quarter: 2013Q3

REPORT INFORMATION
  Report Type: Spontaneous
  Country: US (occurrence: None)
  Receive Date: 20130703
  Receipt Date: 20130703
  Transmission Date: 20140515
  Serious: Yes (Hospitalization, Other)
  Sender: FDA-Public Use
  Company Number: AUR-APL-2013-05410

PATIENT
  Age: 19 Year
  Sex: Female

DRUGS (1)
  1. AMLODIPINE (AMLODIPINE) [Suspect]
     Indication: PRODUCT USED FOR UNKNOWN INDICATION

REACTIONS (10)
  - Angioedema [None]
  - Hyperglycaemia [None]
  - Hypotension [None]
  - Metabolic acidosis [None]
  - Overdose [None]
  - Sinus tachycardia [None]
  - Throat tightness [None]
  - Dysphonia [None]
  - Lip oedema [None]
  - Palatal oedema [None]
